FAERS Safety Report 4763472-9 (Version None)
Quarter: 2005Q3

REPORT INFORMATION
  Report Type: 
  Country: None (occurrence: None)
  Receive Date: 20050902
  Receipt Date: 20050818
  Transmission Date: 20060218
  Serious: Yes (Hospitalization)
  Sender: FDA-Public Use
  Company Number: COT_0186_2005

PATIENT
  Age: 43 Year
  Sex: Male

DRUGS (2)
  1. VENTAVIS [Suspect]
     Indication: PULMONARY HYPERTENSION
     Dosage: 5 MCG 6XD IH
     Route: 055
     Dates: start: 20050719
  2. TRACLEER [Concomitant]

REACTIONS (7)
  - CONDITION AGGRAVATED [None]
  - DYSPNOEA [None]
  - HEART RATE INCREASED [None]
  - MALAISE [None]
  - OEDEMA PERIPHERAL [None]
  - PULMONARY HYPERTENSION [None]
  - THERAPY NON-RESPONDER [None]
